FAERS Safety Report 19116648 (Version 2)
Quarter: 2021Q2

REPORT INFORMATION
  Report Type: Spontaneous
  Country: JP (occurrence: JP)
  Receive Date: 20210410
  Receipt Date: 20210519
  Transmission Date: 20210717
  Serious: Yes (Life-Threatening)
  Sender: FDA-Public Use
  Company Number: JP-ROCHE-2808699

PATIENT
  Age: 69 Year
  Sex: Male
  Weight: 67 kg

DRUGS (13)
  1. TECENTRIQ [Suspect]
     Active Substance: ATEZOLIZUMAB
     Indication: HEPATOCELLULAR CARCINOMA
     Route: 041
     Dates: start: 20210312
  2. LOXOPROFEN SODIUM [Concomitant]
     Active Substance: LOXOPROFEN SODIUM
     Dosage: 180 MILLIGRAM, QD
     Route: 048
     Dates: start: 20210227, end: 20210322
  3. AVASTIN [Suspect]
     Active Substance: BEVACIZUMAB
     Indication: HEPATOCELLULAR CARCINOMA
     Route: 041
     Dates: start: 20210218, end: 20210312
  4. NESINA [Concomitant]
     Active Substance: ALOGLIPTIN BENZOATE
     Dosage: 12.5 MILLIGRAM, QD
     Route: 048
     Dates: start: 20200804, end: 20210224
  5. MAGNESIUM OXIDE. [Concomitant]
     Active Substance: MAGNESIUM OXIDE
     Dosage: 500 MILLIGRAM, QD
     Route: 048
     Dates: start: 20210218, end: 20210331
  6. SUREPOST [Concomitant]
     Active Substance: REPAGLINIDE
     Dosage: 0.25 MILLIGRAM, QD
     Route: 048
     Dates: start: 20210119, end: 20210414
  7. BROTIZOLAM [Concomitant]
     Active Substance: BROTIZOLAM
     Dosage: 0.5 MILLIGRAM, QD
     Route: 048
     Dates: start: 20210126
  8. LANSOPRAZOLE. [Concomitant]
     Active Substance: LANSOPRAZOLE
     Dosage: 30 MILLIGRAM, QD
     Route: 048
     Dates: start: 20200923, end: 20210224
  9. REBAMIPIDE [Concomitant]
     Active Substance: REBAMIPIDE
     Dosage: 200 MILLIGRAM, QD
     Route: 048
     Dates: start: 20210227, end: 20210322
  10. ALLOPURINOL. [Suspect]
     Active Substance: ALLOPURINOL
     Indication: PRODUCT USED FOR UNKNOWN INDICATION
     Dosage: ON 24/FEB/2021, HE RECEIVED MOST RECENT DOSE PRIOR TO SAE
     Route: 048
     Dates: start: 20190604
  11. OXYCODONE HYDROCHLORIDE. [Concomitant]
     Active Substance: OXYCODONE HYDROCHLORIDE
     Route: 048
     Dates: start: 20210221, end: 20210408
  12. OXYCODONE HYDROCHLORIDE. [Concomitant]
     Active Substance: OXYCODONE HYDROCHLORIDE
     Dosage: 5 MILLIGRAM, QD
     Route: 048
     Dates: start: 20210409, end: 20210414
  13. DAIKENCHUTO [Concomitant]
     Active Substance: HERBALS
     Dosage: 7.5 GRAM, QD
     Route: 048
     Dates: start: 20210114, end: 20210224

REACTIONS (1)
  - Acute kidney injury [Not Recovered/Not Resolved]

NARRATIVE: CASE EVENT DATE: 20210323
